FAERS Safety Report 6091408-X (Version None)
Quarter: 2009Q1

REPORT INFORMATION
  Report Type: 
  Country: None (occurrence: None)
  Receive Date: 20090225
  Receipt Date: 20090119
  Transmission Date: 20090719
  Serious: No
  Sender: FDA-Public Use
  Company Number: A0763956A

PATIENT
  Age: 51 Year
  Sex: Female

DRUGS (5)
  1. VERAMYST [Suspect]
     Indication: SINUSITIS
     Dosage: 2PUFF PER DAY
     Route: 045
     Dates: start: 20081201
  2. PROZAC [Concomitant]
  3. ATIVAN [Concomitant]
  4. GLYBURIDE [Concomitant]
  5. AVAPRO [Concomitant]

REACTIONS (4)
  - ANGER [None]
  - BLOOD GLUCOSE DECREASED [None]
  - DRUG INEFFECTIVE [None]
  - MOOD SWINGS [None]
